FAERS Safety Report 21242492 (Version 3)
Quarter: 2022Q3

REPORT INFORMATION
  Report Type: Report from Study
  Country: US (occurrence: US)
  Receive Date: 20220823
  Receipt Date: 20220922
  Transmission Date: 20221027
  Serious: Yes (Hospitalization)
  Sender: FDA-Public Use
  Company Number: US-Accord-274283

PATIENT
  Age: 17 Year
  Sex: Male
  Weight: 95.30 kg

DRUGS (1)
  1. CLOZAPINE [Suspect]
     Active Substance: CLOZAPINE
     Indication: Homicidal ideation
     Dosage: 25MG EVERY MORNING AND  50MG NIGHTLY
     Route: 048

REACTIONS (2)
  - Homicidal ideation [Unknown]
  - Condition aggravated [Unknown]

NARRATIVE: CASE EVENT DATE: 20220811
